FAERS Safety Report 19234006 (Version 1)
Quarter: 2021Q2

REPORT INFORMATION
  Report Type: Spontaneous
  Country: CN (occurrence: CN)
  Receive Date: 20210508
  Receipt Date: 20210508
  Transmission Date: 20210717
  Serious: Yes (Other)
  Sender: FDA-Public Use
  Company Number: CN-UCBSA-2021020887

PATIENT
  Age: 1 Year
  Sex: Male

DRUGS (9)
  1. LAMOTRIGINE. [Suspect]
     Active Substance: LAMOTRIGINE
     Indication: SEIZURE
     Dosage: 10 MILLIGRAM/DAY
  2. TOPIRAMATE. [Suspect]
     Active Substance: TOPIRAMATE
     Indication: SEIZURE
     Dosage: 75 MILLIGRAM/DAY
  3. ACTH [Concomitant]
     Active Substance: CORTICOTROPIN
     Indication: PRODUCT USED FOR UNKNOWN INDICATION
     Dosage: 20 U/DAY
  4. CLONAZEPAM. [Suspect]
     Active Substance: CLONAZEPAM
     Indication: SEIZURE
     Dosage: 0.25 MILLIGRAM/DAY
  5. PREDNISONE. [Concomitant]
     Active Substance: PREDNISONE
     Indication: PRODUCT USED FOR UNKNOWN INDICATION
     Dosage: 10 MILLIGRAM/DAY
  6. TOPIRAMATE. [Suspect]
     Active Substance: TOPIRAMATE
     Dosage: 100 MILLIGRAM/DAY
  7. NITRAZEPAM [Concomitant]
     Active Substance: NITRAZEPAM
     Indication: SEIZURE
     Dosage: 5 MILLIGRAM/DAY
  8. LEVETIRACETAM. [Suspect]
     Active Substance: LEVETIRACETAM
     Indication: SEIZURE
     Dosage: 300 MILLIGRAM/DAY
  9. LAMOTRIGINE. [Suspect]
     Active Substance: LAMOTRIGINE
     Dosage: 15 MILLIGRAM/DAY

REACTIONS (5)
  - Multiple-drug resistance [Unknown]
  - Seizure [Recovering/Resolving]
  - Pneumonia [Unknown]
  - Hepatic function abnormal [Unknown]
  - Skin hypopigmentation [Unknown]
